FAERS Safety Report 16907797 (Version 1)
Quarter: 2019Q4

REPORT INFORMATION
  Report Type: Spontaneous
  Country: US (occurrence: US)
  Receive Date: 20190820
  Receipt Date: 20190820
  Transmission Date: 20200122
  Serious: Yes (Hospitalization)
  Sender: FDA-Public Use
  Company Number: None

PATIENT
  Age: 24 Year
  Sex: Male

DRUGS (1)
  1. HUMIRA [Suspect]
     Active Substance: ADALIMUMAB
     Indication: PSORIASIS
     Route: 058
     Dates: start: 20170308

REACTIONS (4)
  - Oropharyngeal pain [None]
  - Psoriasis [None]
  - Inappropriate schedule of product administration [None]
  - Pyrexia [None]

NARRATIVE: CASE EVENT DATE: 20190809
